FAERS Safety Report 4949887-4 (Version None)
Quarter: 2006Q1

REPORT INFORMATION
  Report Type: 
  Country: None (occurrence: None)
  Receive Date: 20060321
  Receipt Date: 20060208
  Transmission Date: 20060701
  Serious: Yes (Hospitalization, Disabling)
  Sender: FDA-Public Use
  Company Number: US-MERCK-0602USA02278

PATIENT
  Age: 81 Year
  Sex: Female
  Weight: 82 kg

DRUGS (8)
  1. VIOXX [Suspect]
     Indication: RHEUMATOID ARTHRITIS
     Route: 048
     Dates: start: 20030205, end: 20040208
  2. VIOXX [Suspect]
     Indication: ARTHRITIS
     Route: 048
     Dates: start: 20030205, end: 20040208
  3. RELAFEN [Concomitant]
     Route: 065
  4. LASIX [Concomitant]
     Route: 065
  5. PREDNISONE [Concomitant]
     Route: 065
  6. GLYNASE [Concomitant]
     Route: 065
  7. METHOTREXATE [Concomitant]
     Route: 065
  8. AZULFIDINE [Concomitant]
     Route: 065

REACTIONS (3)
  - CATARACT [None]
  - MYOCARDIAL INFARCTION [None]
  - RHEUMATOID ARTHRITIS [None]
